FAERS Safety Report 6779777-6 (Version None)
Quarter: 2010Q2

REPORT INFORMATION
  Report Type: 
  Country: None (occurrence: None)
  Receive Date: 20100618
  Receipt Date: 20100608
  Transmission Date: 20101027
  Serious: No
  Sender: FDA-Public Use
  Company Number: US-JNJFOC-20100603339

PATIENT
  Sex: Male
  Weight: 160 kg

DRUGS (5)
  1. DURAGESIC-100 [Suspect]
     Indication: NECK PAIN
     Dosage: NDC# 50458-094-05 AND 50458-091-05
  2. DURAGESIC-100 [Suspect]
     Indication: BACK PAIN
     Dosage: NDC# 50458-094-05 AND 50458-091-05
  3. HYDROCODONE [Concomitant]
     Indication: PAIN
     Dosage: I EVERY 4-6 HOURS AS NEEDED
     Route: 048
  4. BACLOFEN [Concomitant]
     Indication: MUSCLE RELAXANT THERAPY
     Route: 048
  5. DIAZEPAM [Concomitant]
     Indication: ANXIETY
     Route: 048

REACTIONS (1)
  - WRONG TECHNIQUE IN DRUG USAGE PROCESS [None]
